FAERS Safety Report 8901681 (Version 1)
Quarter: 2012Q4

REPORT INFORMATION
  Report Type: Spontaneous
  Country: US (occurrence: None)
  Receive Date: 20121108
  Receipt Date: 20121108
  Transmission Date: 20130627
  Serious: Yes (Disabling, Other)
  Sender: FDA-Public Use
  Company Number: None

PATIENT
  Age: 56 Year
  Sex: Female
  Weight: 68.95 kg

DRUGS (4)
  1. MONTELUKAST SODIUM 10MG [Suspect]
     Indication: ALLERGIC RHINITIS
     Dosage: 10mg  daily po
     Route: 048
     Dates: start: 20120910, end: 20121001
  2. MONTELUKAST SODIUM 10MG [Suspect]
     Indication: ALLERGIC ASTHMA
     Dosage: 10mg  daily po
     Route: 048
     Dates: start: 20120910, end: 20121001
  3. MONTELUKAST SODIUM 10MG [Suspect]
     Indication: ALLERGIC RHINITIS
     Dosage: 5mg  daily   po
     Route: 048
     Dates: start: 20121015, end: 20121019
  4. MONTELUKAST SODIUM 10MG [Suspect]
     Indication: ALLERGIC ASTHMA
     Dosage: 5mg  daily   po
     Route: 048
     Dates: start: 20121015, end: 20121019

REACTIONS (7)
  - Arthralgia [None]
  - Connective tissue disorder [None]
  - Musculoskeletal pain [None]
  - Skin burning sensation [None]
  - Herpes simplex [None]
  - Fatigue [None]
  - Activities of daily living impaired [None]
